FAERS Safety Report 14032425 (Version 3)
Quarter: 2018Q1

REPORT INFORMATION
  Report Type: Spontaneous
  Country: FR (occurrence: FR)
  Receive Date: 20171002
  Receipt Date: 20180316
  Transmission Date: 20180508
  Serious: Yes (Hospitalization, Other)
  Sender: FDA-Public Use
  Company Number: FR-PFIZER INC-2017416260

PATIENT
  Age: 77 Year
  Sex: Male

DRUGS (12)
  1. NAFTIDROFURYL [Concomitant]
     Active Substance: NAFRONYL
     Indication: PERIPHERAL ARTERIAL OCCLUSIVE DISEASE
     Dosage: 400 MG, 1X/DAY
     Route: 048
     Dates: end: 20120703
  2. OXEOL [Concomitant]
     Active Substance: BAMBUTEROL HYDROCHLORIDE
  3. LOGIMAX [Concomitant]
     Active Substance: FELODIPINE\METOPROLOL SUCCINATE
     Dosage: UNK
     Dates: end: 20120608
  4. PREVISCAN /00789001/ [Concomitant]
     Active Substance: FLUINDIONE
     Dosage: UNK
     Dates: start: 201205
  5. CEBUTID [Interacting]
     Active Substance: FLURBIPROFEN
     Indication: RHEUMATIC DISORDER
     Dosage: 1 DF, 1X/DAY
     Route: 048
     Dates: end: 20120627
  6. EUPRESSYL /00631801/ [Concomitant]
     Active Substance: URAPIDIL
     Indication: HYPERTENSION
     Dosage: 120 MG, 1X/DAY
     Route: 048
     Dates: end: 20120627
  7. ZYLORIC [Concomitant]
     Active Substance: ALLOPURINOL
     Indication: HYPERURICAEMIA
     Dosage: 1 DF, 1X/DAY
     Route: 048
     Dates: end: 20120627
  8. KALEORID [Concomitant]
     Active Substance: POTASSIUM CHLORIDE
  9. DIAMICRON [Concomitant]
     Active Substance: GLICLAZIDE
     Indication: DIABETES MELLITUS
     Dosage: 1 DF, 1X/DAY
     Route: 048
     Dates: end: 20120627
  10. FUROSEMIDE. [Interacting]
     Active Substance: FUROSEMIDE
     Indication: HYPERTENSION
     Dosage: 80 MG, 1X/DAY
     Route: 048
  11. QUINAPRIL. [Suspect]
     Active Substance: QUINAPRIL
     Indication: HYPERTENSION
     Dosage: 1 DF, 1X/DAY
     Route: 048
     Dates: end: 20120627
  12. ATENOLOL. [Concomitant]
     Active Substance: ATENOLOL
     Dosage: UNK
     Dates: start: 20120608

REACTIONS (6)
  - Condition aggravated [Recovering/Resolving]
  - Blood glucose increased [Unknown]
  - Orthostatic hypotension [Recovered/Resolved]
  - Renal failure [Recovering/Resolving]
  - Drug interaction [Recovering/Resolving]
  - Malaise [Recovered/Resolved]

NARRATIVE: CASE EVENT DATE: 201204
